FAERS Safety Report 17391024 (Version 2)
Quarter: 2020Q1

REPORT INFORMATION
  Report Type: Report from Study
  Country: CA (occurrence: CA)
  Receive Date: 20200207
  Receipt Date: 20200225
  Transmission Date: 20200409
  Serious: Yes (Hospitalization, Other)
  Sender: FDA-Public Use
  Company Number: CA-JNJFOC-20190603262

PATIENT
  Age: 23 Year
  Sex: Female
  Weight: 63.7 kg

DRUGS (3)
  1. REMICADE [Suspect]
     Active Substance: INFLIXIMAB
     Indication: CROHN^S DISEASE
     Dosage: 5 MG/KG
     Route: 042
     Dates: start: 20190125
  2. IMURAN [Concomitant]
     Active Substance: AZATHIOPRINE
     Indication: CROHN^S DISEASE
     Route: 048
  3. PREDNISONE. [Suspect]
     Active Substance: PREDNISONE
     Indication: PRODUCT USED FOR UNKNOWN INDICATION
     Route: 065

REACTIONS (7)
  - Abscess [Recovered/Resolved]
  - Sciatica [Recovered/Resolved]
  - Lupus-like syndrome [Unknown]
  - Abdominal distension [Recovered/Resolved]
  - Hospitalisation [Unknown]
  - Pain in extremity [Not Recovered/Not Resolved]
  - Oropharyngeal pain [Unknown]

NARRATIVE: CASE EVENT DATE: 201910
